FAERS Safety Report 5419161-0 (Version None)
Quarter: 2007Q3

REPORT INFORMATION
  Report Type: 
  Country: None (occurrence: None)
  Receive Date: 20070815
  Receipt Date: 20070802
  Transmission Date: 20080115
  Serious: Yes (Other)
  Sender: FDA-Public Use
  Company Number: 5711 / 2007S1007177

PATIENT
  Age: 59 Year
  Sex: Male

DRUGS (1)
  1. AMNESTEEM [Suspect]
     Indication: PROSTATE CANCER
     Dosage: 90 MG, DAILY, 4 DAYS, PO
     Route: 048
     Dates: start: 20060801, end: 20070701

REACTIONS (1)
  - MYOCARDIAL INFARCTION [None]
